FAERS Safety Report 5161456-2 (Version None)
Quarter: 2006Q4

REPORT INFORMATION
  Report Type: 
  Country: None (occurrence: None)
  Receive Date: 20061130
  Receipt Date: 20060811
  Transmission Date: 20070319
  Serious: No
  Sender: FDA-Public Use
  Company Number: US-GLAXOSMITHKLINE-A0616329A

PATIENT
  Age: 70 Year
  Sex: Male

DRUGS (7)
  1. WELLBUTRIN XL [Suspect]
     Indication: DEPRESSION
     Dosage: 300MG PER DAY
     Route: 048
     Dates: start: 20050101
  2. ATENOLOL [Concomitant]
  3. LISINOPRIL [Concomitant]
  4. SYNTHROID [Concomitant]
  5. WARFARIN SODIUM [Concomitant]
  6. CRESTOR [Concomitant]
  7. HYDROCHLOROTHIAZIDE [Concomitant]

REACTIONS (2)
  - DRY MOUTH [None]
  - HYPERHIDROSIS [None]
